FAERS Safety Report 11093012 (Version 1)
Quarter: 2015Q2

REPORT INFORMATION
  Report Type: Spontaneous
  Country: AU (occurrence: AU)
  Receive Date: 20150506
  Receipt Date: 20150506
  Transmission Date: 20150821
  Serious: Yes (Other)
  Sender: FDA-Public Use
  Company Number: AU-IPSEN BIOPHARMACEUTICALS, INC.-2015-4350

PATIENT
  Sex: Female

DRUGS (2)
  1. SOMATULINE AUTOGEL [Suspect]
     Active Substance: LANREOTIDE ACETATE
     Indication: CARCINOID SYNDROME
     Dosage: 120 MG
     Route: 065
     Dates: start: 20150320, end: 201504
  2. SOMATULINE AUTOGEL [Suspect]
     Active Substance: LANREOTIDE ACETATE
     Indication: NEUROENDOCRINE TUMOUR

REACTIONS (9)
  - Pain [Unknown]
  - Mass [Unknown]
  - Diarrhoea [Recovered/Resolved]
  - Serotonin syndrome [Unknown]
  - Discomfort [Recovered/Resolved]
  - Burning sensation [Unknown]
  - Injection site granuloma [Recovering/Resolving]
  - Influenza like illness [Recovered/Resolved]
  - Hypersensitivity [Unknown]

NARRATIVE: CASE EVENT DATE: 2015
